FAERS Safety Report 16375588 (Version 1)
Quarter: 2019Q2

REPORT INFORMATION
  Report Type: Report from Study
  Country: KR (occurrence: KR)
  Receive Date: 20190531
  Receipt Date: 20190531
  Transmission Date: 20190711
  Serious: Yes (Hospitalization)
  Sender: FDA-Public Use
  Company Number: KR-VIIV HEALTHCARE LIMITED-KR2019GSK093869

PATIENT
  Age: 40 Year
  Sex: Male
  Weight: 68 kg

DRUGS (6)
  1. CABOTEGRAVIR [Suspect]
     Active Substance: CABOTEGRAVIR
     Dosage: 400 MG, UNK
     Route: 030
     Dates: start: 20190516
  2. CABOTEGRAVIR [Suspect]
     Active Substance: CABOTEGRAVIR
     Indication: HIV INFECTION
     Dosage: 600 MG, UNK
     Route: 030
     Dates: start: 20190319
  3. RILPIVIRINE [Suspect]
     Active Substance: RILPIVIRINE
     Dosage: 600 MG, UNK
     Route: 030
     Dates: start: 20190516
  4. RILPIVIRINE [Suspect]
     Active Substance: RILPIVIRINE
     Indication: HIV INFECTION
     Dosage: 900 MG, UNK
     Route: 030
     Dates: start: 20190319
  5. RILPIVIRINE [Suspect]
     Active Substance: RILPIVIRINE
     Dosage: 600 MG, UNK
     Route: 030
     Dates: start: 20190416
  6. CABOTEGRAVIR [Suspect]
     Active Substance: CABOTEGRAVIR
     Dosage: 400 MG, UNK
     Route: 030
     Dates: start: 20190416

REACTIONS (1)
  - Abnormal behaviour [Recovered/Resolved]

NARRATIVE: CASE EVENT DATE: 20190508
